FAERS Safety Report 20907236 (Version 1)
Quarter: 2022Q2

REPORT INFORMATION
  Report Type: Spontaneous
  Country: FR (occurrence: FR)
  Receive Date: 20220602
  Receipt Date: 20220602
  Transmission Date: 20220721
  Serious: Yes (Death, Other)
  Sender: FDA-Public Use
  Company Number: None

PATIENT
  Sex: Male
  Weight: 65 kg

DRUGS (3)
  1. ALPHAGAN P [Suspect]
     Active Substance: BRIMONIDINE TARTRATE
     Indication: Product used for unknown indication
     Dosage: 1 GTT, SINGLE
     Route: 047
     Dates: start: 20220217, end: 20220217
  2. BENOXINATE HYDROCHLORIDE [Suspect]
     Active Substance: BENOXINATE HYDROCHLORIDE
     Indication: Local anaesthesia
     Dosage: UNK
     Route: 047
     Dates: start: 20220217, end: 20220217
  3. TROPICAMIDE [Suspect]
     Active Substance: TROPICAMIDE
     Indication: Fundoscopy
     Dosage: UNK
     Route: 047
     Dates: start: 20220217, end: 20220217

REACTIONS (1)
  - Cardiac arrest [Fatal]

NARRATIVE: CASE EVENT DATE: 20220217
